FAERS Safety Report 9699474 (Version 1)
Quarter: 2013Q4

REPORT INFORMATION
  Report Type: Spontaneous
  Country: US (occurrence: US)
  Receive Date: 20131120
  Receipt Date: 20131120
  Transmission Date: 20140711
  Serious: Yes (Life-Threatening, Hospitalization)
  Sender: FDA-Public Use
  Company Number: US-MYLANLABS-2013S1025438

PATIENT
  Age: 14 Year
  Sex: Male

DRUGS (2)
  1. METHADONE [Suspect]
     Route: 065
  2. PARACETAMOL [Concomitant]
     Route: 065

REACTIONS (1)
  - Leukoencephalopathy [Recovering/Resolving]
